FAERS Safety Report 19272272 (Version 1)
Quarter: 2021Q2

REPORT INFORMATION
  Report Type: Report from Study
  Country: CO (occurrence: CO)
  Receive Date: 20210518
  Receipt Date: 20210518
  Transmission Date: 20210717
  Serious: Yes (Other)
  Sender: FDA-Public Use
  Company Number: CO-TAKEDA-2021TUS031074

PATIENT
  Age: 11 Month
  Sex: Male

DRUGS (4)
  1. ADVATE [Suspect]
     Active Substance: ANTIHEMOPHILIC FACTOR, HUMAN RECOMBINANT
     Indication: FACTOR VIII DEFICIENCY
     Dosage: 500 INTERNATIONAL UNIT
     Route: 042
     Dates: start: 20210216
  2. EMICIZUMAB. [Concomitant]
     Active Substance: EMICIZUMAB
     Indication: PROPHYLAXIS
     Dosage: 30 MILLIGRAM/KILOGRAM, 2/MONTH
     Route: 058
     Dates: start: 20210417
  3. ADVATE [Suspect]
     Active Substance: ANTIHEMOPHILIC FACTOR, HUMAN RECOMBINANT
     Indication: FACTOR VIII DEFICIENCY
     Dosage: 500 INTERNATIONAL UNIT
     Route: 042
     Dates: start: 20210216
  4. ADVATE [Suspect]
     Active Substance: ANTIHEMOPHILIC FACTOR, HUMAN RECOMBINANT
     Indication: FACTOR VIII DEFICIENCY
     Dosage: 500 INTERNATIONAL UNIT
     Route: 042
     Dates: start: 20210216

REACTIONS (4)
  - Anaemia [Unknown]
  - Traumatic haematoma [Unknown]
  - Intraventricular haemorrhage neonatal [Unknown]
  - Seizure [Unknown]

NARRATIVE: CASE EVENT DATE: 202102
